FAERS Safety Report 7682652-6 (Version None)
Quarter: 2011Q3

REPORT INFORMATION
  Report Type: 
  Country: None (occurrence: None)
  Receive Date: 20110810
  Receipt Date: 20110727
  Transmission Date: 20111222
  Serious: Yes (Other)
  Sender: FDA-Public Use
  Company Number: AUR-APL-2011-04491

PATIENT
  Sex: Female

DRUGS (3)
  1. MIRTAZAPINE [Suspect]
     Indication: PRODUCT USED FOR UNKNOWN INDICATION
     Dates: start: 20110726, end: 20110727
  2. PRADAXA [Concomitant]
  3. INSULIN (INSULIN) [Concomitant]

REACTIONS (2)
  - DRUG LEVEL INCREASED [None]
  - HYPERSOMNIA [None]
